FAERS Safety Report 13545799 (Version 1)
Quarter: 2017Q2

REPORT INFORMATION
  Report Type: Spontaneous
  Country: US (occurrence: US)
  Receive Date: 20170515
  Receipt Date: 20170515
  Transmission Date: 20170830
  Serious: No
  Sender: FDA-Public Use
  Company Number: US-WARNER CHILCOTT-2016-002965

PATIENT
  Sex: Female

DRUGS (1)
  1. RISEDRONATE [Suspect]
     Active Substance: RISEDRONATE SODIUM
     Dosage: 150 MG, SINGLE
     Route: 048
     Dates: start: 20160629, end: 20160629

REACTIONS (2)
  - Gait disturbance [Recovered/Resolved]
  - Musculoskeletal disorder [Recovered/Resolved]

NARRATIVE: CASE EVENT DATE: 20160629
